FAERS Safety Report 5770712-6 (Version None)
Quarter: 2008Q2

REPORT INFORMATION
  Report Type: 
  Country: None (occurrence: None)
  Receive Date: 20080613
  Receipt Date: 20080509
  Transmission Date: 20081010
  Serious: No
  Sender: FDA-Public Use
  Company Number: US-ABBOTT-08P-163-0451440-00

PATIENT
  Sex: Female
  Weight: 59.02 kg

DRUGS (2)
  1. HUMIRA [Suspect]
     Indication: RHEUMATOID ARTHRITIS
     Route: 058
     Dates: start: 20060201, end: 20070501
  2. DICLOFENAC [Concomitant]
     Indication: OSTEOARTHRITIS
     Dosage: 100 MG SLOW RELEASE IN MORNING AND 50 MG AT 5:00 PM
     Route: 048
     Dates: start: 20010101

REACTIONS (1)
  - RHEUMATOID ARTHRITIS [None]
